FAERS Safety Report 21955807 (Version 3)
Quarter: 2023Q1

REPORT INFORMATION
  Report Type: Spontaneous
  Country: AU (occurrence: AU)
  Receive Date: 20230206
  Receipt Date: 20230228
  Transmission Date: 20230417
  Serious: Yes (Other)
  Sender: FDA-Public Use
  Company Number: AU-ORGANON-O2301AUS002828

PATIENT
  Age: 29 Year
  Sex: Female
  Weight: 76 kg

DRUGS (3)
  1. ETONOGESTREL [Suspect]
     Active Substance: ETONOGESTREL
     Indication: Contraception
     Dosage: 1 IMPLANT
     Route: 059
     Dates: start: 20201102, end: 20230130
  2. SERTRALINE [Concomitant]
     Active Substance: SERTRALINE HYDROCHLORIDE
     Indication: Anxiety
     Dosage: 100 MILLIGRAM
     Route: 048
     Dates: start: 2019
  3. SAXENDA [Concomitant]
     Active Substance: LIRAGLUTIDE
     Indication: Weight increased
     Dosage: STRENGTH :6 MILLIGRAM/MILLILITRE
     Route: 030
     Dates: start: 20220310, end: 20220625

REACTIONS (7)
  - Pregnancy with implant contraceptive [Unknown]
  - Thrombosis [Unknown]
  - Unintended pregnancy [Unknown]
  - Depression [Unknown]
  - Anxiety [Unknown]
  - Pain in extremity [Unknown]
  - Peripheral swelling [Unknown]

NARRATIVE: CASE EVENT DATE: 20221229
